FAERS Safety Report 8816736 (Version 1)
Quarter: 2012Q4

REPORT INFORMATION
  Report Type: Spontaneous
  Country: US (occurrence: None)
  Receive Date: 20121001
  Receipt Date: 20121001
  Transmission Date: 20130627
  Serious: Yes (Other)
  Sender: FDA-Public Use
  Company Number: 001354721A

PATIENT
  Age: 53 Year
  Sex: Female

DRUGS (3)
  1. MEANINGFUL BEAUTY DAY CREAM SPF 20 [Suspect]
     Dosage: once daily dermal
  2. LACTAID TABLETS [Concomitant]
  3. GUMMY BEAR VITAMINS [Concomitant]

REACTIONS (1)
  - Urticaria [None]
